FAERS Safety Report 25523273 (Version 3)
Quarter: 2025Q3

REPORT INFORMATION
  Report Type: Report from Study
  Country: BR (occurrence: BR)
  Receive Date: 20250707
  Receipt Date: 20250724
  Transmission Date: 20251021
  Serious: Yes (Other)
  Sender: SANDOZ
  Company Number: BR-SANDOZ-SDZ2025BR046665

PATIENT
  Sex: Male

DRUGS (2)
  1. OMNITROPE [Suspect]
     Active Substance: SOMATROPIN
     Indication: Product used for unknown indication
     Dosage: 2.3 MG, QD (STRENGTH:10 MG)
     Route: 058
     Dates: start: 202410, end: 202506
  2. OMNITROPE [Suspect]
     Active Substance: SOMATROPIN
     Dosage: 2.3 MG, QD (STRENGTH:10 MG)
     Route: 058
     Dates: start: 20250627

REACTIONS (4)
  - Accident [Unknown]
  - Fracture [Unknown]
  - Liquid product physical issue [Unknown]
  - Poor quality product administered [Unknown]

NARRATIVE: CASE EVENT DATE: 20250101
